FAERS Safety Report 9958588 (Version 1)
Quarter: 2014Q1

REPORT INFORMATION
  Report Type: Spontaneous
  Country: US (occurrence: None)
  Receive Date: 20140124
  Receipt Date: 20140124
  Transmission Date: 20141002
  Serious: Yes (Other)
  Sender: FDA-Public Use
  Company Number: 2011AP001772

PATIENT
  Age: 67 Year
  Sex: Female

DRUGS (5)
  1. PAROXETINE [Suspect]
     Indication: ANXIETY
     Route: 048
     Dates: start: 20110519, end: 20110810
  2. CLONAZEPAM [Concomitant]
  3. HYDROCODONE [Concomitant]
  4. LITHIUM CARBONATE [Concomitant]
  5. PAROXETINE HYDROCHLORIDE [Concomitant]

REACTIONS (2)
  - Anxiety [None]
  - Insomnia [None]
